FAERS Safety Report 8403578-6 (Version None)
Quarter: 2012Q2

REPORT INFORMATION
  Report Type: 
  Country: None (occurrence: None)
  Receive Date: 20120601
  Receipt Date: 20120523
  Transmission Date: 20120825
  Serious: Yes (Other)
  Sender: FDA-Public Use
  Company Number: CA-ASTRAZENECA-2012SE33294

PATIENT
  Age: 65 Year
  Sex: Female

DRUGS (3)
  1. SYMBICORT [Suspect]
     Indication: ASTHMA
     Dosage: 400MCG
     Route: 055
     Dates: start: 20040101
  2. VALTREX [Concomitant]
  3. SINGULAIR [Concomitant]

REACTIONS (3)
  - HERPES ZOSTER [None]
  - DYSPNOEA [None]
  - PNEUMONIA [None]
